FAERS Safety Report 9618410 (Version 2)
Quarter: 2013Q4

REPORT INFORMATION
  Report Type: Report from Study
  Country: JP (occurrence: JP)
  Receive Date: 20131014
  Receipt Date: 20131101
  Transmission Date: 20140711
  Serious: Yes (Other)
  Sender: FDA-Public Use
  Company Number: JP-AMGEN-JPNCT2013071788

PATIENT
  Age: 61 Year
  Sex: Male
  Weight: 70 kg

DRUGS (45)
  1. DENOSUMAB [Suspect]
     Indication: METASTASES TO BONE
     Dosage: 120 MG,
     Route: 058
     Dates: start: 20130207, end: 20130509
  2. PACLITAXEL [Suspect]
     Indication: PRODUCT USED FOR UNKNOWN INDICATION
     Dosage: UNKNOWN
     Route: 065
     Dates: start: 20130304, end: 20130307
  3. IFOMIDE [Suspect]
     Indication: PRODUCT USED FOR UNKNOWN INDICATION
     Dosage: UNKNOWN
     Route: 065
     Dates: start: 20130304, end: 20130307
  4. NEDAPLATIN [Suspect]
     Indication: PRODUCT USED FOR UNKNOWN INDICATION
     Dosage: UNKNOWN
     Route: 065
     Dates: start: 20130304, end: 20130307
  5. OXYCONTIN [Suspect]
     Indication: PRODUCT USED FOR UNKNOWN INDICATION
     Dosage: UNK
     Route: 048
     Dates: start: 20121023, end: 20130618
  6. ALFAROL [Concomitant]
     Dosage: UNK
     Route: 048
     Dates: start: 20121227, end: 20130328
  7. CALCIUM LACTATE [Concomitant]
     Dosage: UNK
     Route: 048
     Dates: start: 20121227, end: 20130328
  8. CALCICHEW [Concomitant]
     Dosage: UNKNOWN
     Route: 048
     Dates: start: 20130328
  9. GEMZAR [Concomitant]
     Dosage: UNKNOWN
     Route: 065
     Dates: start: 20090126, end: 201210
  10. CARBOPLATIN [Concomitant]
     Dosage: UNKNOWN
     Route: 065
     Dates: start: 20090126, end: 201301
  11. DECADRON                           /00016001/ [Concomitant]
     Dosage: UNKNOWN
     Route: 065
     Dates: start: 20090126, end: 201205
  12. CISPLATIN [Concomitant]
     Dosage: UNKNOWN
     Route: 065
     Dates: start: 20120620, end: 201210
  13. METHOTREXATE [Concomitant]
     Dosage: UNKNOWN
     Route: 065
     Dates: start: 20121226, end: 201301
  14. EXAL [Concomitant]
     Dosage: UNKNOWN
     Route: 065
     Dates: start: 20121226, end: 201301
  15. ADRIACIN [Concomitant]
     Dosage: UNKNOWN
     Route: 065
     Dates: start: 20121226, end: 201301
  16. RHYTHMY [Concomitant]
     Dosage: UNK
     Route: 048
     Dates: start: 20121126, end: 20121126
  17. SENNOSIDE                          /00571901/ [Concomitant]
     Dosage: UNK
     Route: 048
     Dates: start: 20121126, end: 20121126
  18. VOLTAREN                           /00372301/ [Concomitant]
     Dosage: UNK
     Route: 054
     Dates: start: 20121126, end: 201212
  19. LORCAM [Concomitant]
     Dosage: UNK
     Route: 048
     Dates: start: 20121127, end: 20121203
  20. MUCOSTA [Concomitant]
     Dosage: UNK
     Route: 048
     Dates: start: 20121127, end: 20121203
  21. FERROMIA [Concomitant]
     Dosage: UNK
     Route: 048
     Dates: start: 20121128, end: 20130618
  22. GASTER D [Concomitant]
     Dosage: UNK
     Route: 048
     Dates: start: 20121203, end: 20121211
  23. MOHRUS [Concomitant]
     Dosage: UNKNOWN
     Route: 050
     Dates: start: 20121205
  24. ZYLORIC [Concomitant]
     Dosage: UNK
     Route: 048
     Dates: end: 20130327
  25. EMEND                              /01627301/ [Concomitant]
     Dosage: UNKNOWN
     Route: 048
     Dates: start: 20120418, end: 20130301
  26. SP TROCHES [Concomitant]
     Dosage: UNKNOWN
     Route: 050
     Dates: start: 20120508, end: 20120514
  27. TAKEPRON [Concomitant]
     Dosage: UNK
     Route: 048
     Dates: start: 20120521, end: 20120524
  28. OXINORM                            /00045603/ [Concomitant]
     Dosage: UNK
     Route: 048
     Dates: start: 20121023, end: 20130618
  29. LAXOBERON [Concomitant]
     Dosage: UNKNOWN
     Route: 048
     Dates: start: 20121105, end: 201212
  30. MAGMITT [Concomitant]
     Dosage: UNK
     Route: 048
     Dates: end: 20130618
  31. CRAVIT [Concomitant]
     Dosage: 500-250MG
     Route: 048
     Dates: start: 20130111, end: 20130322
  32. RESTAMIN                           /00000401/ [Concomitant]
     Dosage: UNKNOWN
     Route: 050
     Dates: start: 20130304, end: 20130308
  33. FUROSEMIDE [Concomitant]
     Dosage: UNK
     Route: 048
     Dates: start: 20130307, end: 20130311
  34. FEBURIC [Concomitant]
     Dosage: UNK
     Route: 048
     Dates: start: 20130328, end: 20130618
  35. FENTOS [Concomitant]
     Dosage: UNK
     Route: 050
     Dates: start: 20130509, end: 20130529
  36. KYTRIL [Concomitant]
     Dosage: UNK
     Route: 042
     Dates: start: 20120418, end: 20130306
  37. NEO VITACAIN                       /01127401/ [Concomitant]
     Dosage: UNKNOWN
     Route: 061
     Dates: start: 20121126, end: 20121126
  38. ROPION [Concomitant]
     Dosage: UNK
     Route: 042
     Dates: start: 20121127, end: 20121128
  39. ALOXI [Concomitant]
     Dosage: UNK
     Route: 042
     Dates: start: 20121227, end: 20121227
  40. PRIMPERAN [Concomitant]
     Dosage: UNK
     Route: 042
     Dates: start: 20121127, end: 20130322
  41. RASENAZOLIN [Concomitant]
     Dosage: UNK
     Route: 042
     Dates: start: 20121127, end: 20121128
  42. NEUTROGIN [Concomitant]
     Dosage: UNK
     Route: 058
     Dates: start: 20130111, end: 20130322
  43. CARBAMAZEPINE [Concomitant]
     Dosage: UNKNOWN
     Route: 065
     Dates: start: 20130528
  44. BETAMETHASONE [Concomitant]
     Dosage: UNKNOWN
     Route: 065
     Dates: start: 20130528
  45. XYLOCAINE                          /00033401/ [Concomitant]
     Dosage: UNKNOWN
     Route: 061
     Dates: start: 20121126, end: 20121126

REACTIONS (7)
  - Hypocalcaemia [Recovered/Resolved]
  - Platelet count decreased [Recovering/Resolving]
  - Neutrophil count decreased [Recovering/Resolving]
  - Anaemia [Recovering/Resolving]
  - Back pain [Not Recovered/Not Resolved]
  - Pyrexia [Recovering/Resolving]
  - Nausea [Recovering/Resolving]
